FAERS Safety Report 10492758 (Version 1)
Quarter: 2014Q4

REPORT INFORMATION
  Report Type: Spontaneous
  Country: US (occurrence: US)
  Receive Date: 20141002
  Receipt Date: 20141002
  Transmission Date: 20150528
  Serious: No
  Sender: FDA-Public Use
  Company Number: US-GLAXOSMITHKLINE-A1075093A

PATIENT
  Age: 90 Year
  Sex: Female

DRUGS (4)
  1. ADVAIR HFA [Suspect]
     Active Substance: FLUTICASONE PROPIONATE\SALMETEROL XINAFOATE
     Indication: CHRONIC OBSTRUCTIVE PULMONARY DISEASE
     Dosage: 1PUFF TWICE PER DAY
     Route: 055
  2. ALBUTEROL INHALER [Concomitant]
     Active Substance: ALBUTEROL
  3. SIMVASTATIN. [Concomitant]
     Active Substance: SIMVASTATIN
  4. TRIAMTERENE. [Concomitant]
     Active Substance: TRIAMTERENE

REACTIONS (5)
  - Blood urine present [Unknown]
  - Wound [Unknown]
  - Headache [Recovered/Resolved]
  - Aphonia [Unknown]
  - Product quality issue [Unknown]

NARRATIVE: CASE EVENT DATE: 20140526
